FAERS Safety Report 8301551-X (Version None)
Quarter: 2012Q2

REPORT INFORMATION
  Report Type: 
  Country: None (occurrence: None)
  Receive Date: 20120420
  Receipt Date: 20120416
  Transmission Date: 20120825
  Serious: Yes (Hospitalization)
  Sender: FDA-Public Use
  Company Number: PHHY2012GB023917

PATIENT
  Age: 71 Year
  Sex: Male
  Weight: 79.7 kg

DRUGS (10)
  1. PREDNISONE TAB [Suspect]
     Indication: NON-HODGKIN'S LYMPHOMA
     Dosage: 100 MG
     Route: 048
     Dates: start: 20090325, end: 20090329
  2. NEULASTA [Suspect]
     Indication: NON-HODGKIN'S LYMPHOMA
     Dosage: 6 MG
     Route: 058
     Dates: start: 20090325, end: 20090402
  3. METOCLOPRAMIDE [Concomitant]
     Dosage: 10 MG, QD
     Route: 048
     Dates: start: 20090325, end: 20090404
  4. VINCRISTINE [Suspect]
     Indication: NON-HODGKIN'S LYMPHOMA
     Dosage: 2 MG
     Route: 042
     Dates: start: 20090325, end: 20090325
  5. CYCLOPHOSPHAMIDE [Suspect]
     Indication: NON-HODGKIN'S LYMPHOMA
     Dosage: 1410 MG
     Route: 042
     Dates: start: 20090325, end: 20090325
  6. COTRIM [Concomitant]
     Indication: ANTIFUNGAL PROPHYLAXIS
     Dosage: 960 MG, UNK
     Route: 048
     Dates: start: 20090325
  7. GEMCITABINE [Suspect]
     Indication: NON-HODGKIN'S LYMPHOMA
     Dosage: 1880 MG
     Route: 042
     Dates: start: 20090325, end: 20090401
  8. RITUXIMAB [Suspect]
     Indication: NON-HODGKIN'S LYMPHOMA
     Dosage: 705 MG
     Route: 042
     Dates: start: 20090325, end: 20090325
  9. ASPIRIN [Concomitant]
  10. TRAMADOL HCL [Concomitant]
     Indication: ANALGESIC THERAPY
     Dosage: 100 MG, UNK
     Route: 048
     Dates: start: 20090325

REACTIONS (9)
  - CHEST PAIN [None]
  - FATIGUE [None]
  - MYOCARDIAL INFARCTION [None]
  - THROMBOCYTOPENIA [None]
  - SEPSIS [None]
  - ANAEMIA [None]
  - DYSPNOEA EXERTIONAL [None]
  - PYREXIA [None]
  - INFECTION [None]
